FAERS Safety Report 5196148-7 (Version None)
Quarter: 2006Q4

REPORT INFORMATION
  Report Type: 
  Country: None (occurrence: None)
  Receive Date: 20061222
  Receipt Date: 20061212
  Transmission Date: 20070319
  Serious: Yes (Other)
  Sender: FDA-Public Use
  Company Number: 230001L06ARG

PATIENT
  Age: 15 Year
  Sex: Female

DRUGS (1)
  1. REBIF [Suspect]
     Indication: RELAPSING-REMITTING MULTIPLE SCLEROSIS
     Dosage: 22 MCG, 2 IN 1 WEEKS, SUBCUTANEOUS
     Route: 058

REACTIONS (2)
  - JUVENILE ARTHRITIS [None]
  - THERAPEUTIC RESPONSE DECREASED [None]
